FAERS Safety Report 15743810 (Version 1)
Quarter: 2018Q4

REPORT INFORMATION
  Report Type: Spontaneous
  Country: CA (occurrence: CA)
  Receive Date: 20181220
  Receipt Date: 20181220
  Transmission Date: 20190205
  Serious: Yes (Hospitalization, Other)
  Sender: FDA-Public Use
  Company Number: CA-CELLTRION INC.-2018CA022530

PATIENT

DRUGS (6)
  1. INFLECTRA [Suspect]
     Active Substance: INFLIXIMAB-DYYB
     Dosage: 300 MG, WEEKLY (0, 2, 6, THEN EVERY 8 WEEKS
     Route: 042
     Dates: start: 20181206
  2. PURINETHOL [Concomitant]
     Active Substance: MERCAPTOPURINE
     Dosage: UNK
  3. CITALOPRAM [Concomitant]
     Active Substance: CITALOPRAM HYDROBROMIDE
     Dosage: UNK
  4. GABAPENTIN. [Concomitant]
     Active Substance: GABAPENTIN
     Dosage: UNK
  5. INFLECTRA [Suspect]
     Active Substance: INFLIXIMAB-DYYB
     Indication: CROHN^S DISEASE
     Dosage: 300 MG, WEEKLY (0, 2, 6, THEN EVERY 8 WEEKS
     Route: 042
     Dates: start: 20180904
  6. CORTISONE [Concomitant]
     Active Substance: CORTISONE\HYDROCORTISONE
     Dosage: UNK

REACTIONS (3)
  - Product use issue [Unknown]
  - Inappropriate schedule of product administration [Unknown]
  - Abscess [Unknown]

NARRATIVE: CASE EVENT DATE: 20180906
